FAERS Safety Report 19367457 (Version 1)
Quarter: 2021Q2

REPORT INFORMATION
  Report Type: Spontaneous
  Country: US (occurrence: US)
  Receive Date: 20210603
  Receipt Date: 20210603
  Transmission Date: 20210717
  Serious: No
  Sender: FDA-Public Use
  Company Number: US-PFIZER INC-2021264173

PATIENT
  Age: 67 Year
  Sex: Male

DRUGS (1)
  1. TIGECYCLINE. [Suspect]
     Active Substance: TIGECYCLINE
     Dosage: UNK

REACTIONS (2)
  - Illness [Unknown]
  - Drug hypersensitivity [Unknown]
